FAERS Safety Report 25466793 (Version 1)
Quarter: 2025Q2

REPORT INFORMATION
  Report Type: Spontaneous
  Country: FR (occurrence: FR)
  Receive Date: 20250623
  Receipt Date: 20250623
  Transmission Date: 20250717
  Serious: Yes (Hospitalization, Other)
  Sender: HIKMA
  Company Number: None

PATIENT
  Age: 69 Year
  Sex: Female
  Weight: 70 kg

DRUGS (3)
  1. CARBOPLATIN [Suspect]
     Active Substance: CARBOPLATIN
     Indication: Endometrial adenocarcinoma
     Route: 042
     Dates: start: 20240920, end: 20241220
  2. JEMPERLI [Suspect]
     Active Substance: DOSTARLIMAB-GXLY
     Indication: Endometrial adenocarcinoma
     Route: 042
     Dates: start: 20240920, end: 20241220
  3. PACLITAXEL [Suspect]
     Active Substance: PACLITAXEL
     Indication: Endometrial adenocarcinoma
     Route: 042
     Dates: start: 20240920, end: 20241220

REACTIONS (2)
  - Renal tubular necrosis [Not Recovered/Not Resolved]
  - Acute polyneuropathy [Not Recovered/Not Resolved]

NARRATIVE: CASE EVENT DATE: 20250106
